FAERS Safety Report 5228282-7 (Version None)
Quarter: 2007Q1

REPORT INFORMATION
  Report Type: 
  Country: None (occurrence: None)
  Receive Date: 20070205
  Receipt Date: 20070124
  Transmission Date: 20070707
  Serious: Yes (Other)
  Sender: FDA-Public Use
  Company Number: PHBS2007DO01562

PATIENT
  Age: 35 Year
  Sex: Male

DRUGS (2)
  1. VALSARTAN AND HYDROCHLOROTHIAZIDE [Suspect]
     Indication: HYPERTENSION
     Dosage: VALS 160 / HCT 12.6 MG/DAY
     Route: 048
     Dates: start: 20060901
  2. VALSARTAN AND HYDROCHLOROTHIAZIDE [Suspect]
     Dosage: VALS 160 / HCT 25 MG /DAY
     Route: 048
     Dates: end: 20070101

REACTIONS (2)
  - PALPITATIONS [None]
  - SUPRAVENTRICULAR EXTRASYSTOLES [None]
